FAERS Safety Report 14971204 (Version 1)
Quarter: 2018Q2

REPORT INFORMATION
  Report Type: Spontaneous
  Country: IT (occurrence: IT)
  Receive Date: 20180604
  Receipt Date: 20180604
  Transmission Date: 20180711
  Serious: Yes (Other)
  Sender: FDA-Public Use
  Company Number: IT-MYLANLABS-2018M1036107

PATIENT

DRUGS (8)
  1. FLUDARABINE [Suspect]
     Active Substance: FLUDARABINE PHOSPHATE
     Indication: BONE MARROW CONDITIONING REGIMEN
     Dosage: 40 MG/M2, QD
  2. RITUXIMAB. [Suspect]
     Active Substance: RITUXIMAB
     Indication: PROPHYLAXIS
     Dosage: 200 MG/M2, UNK
  3. THIOTEPA. [Suspect]
     Active Substance: THIOTEPA
     Indication: BONE MARROW CONDITIONING REGIMEN
     Dosage: 8 MG/KG, UNK
  4. CICLOSPORIN [Suspect]
     Active Substance: CYCLOSPORINE
     Dosage: 1 MG/KG, UNK
  5. CICLOSPORIN [Suspect]
     Active Substance: CYCLOSPORINE
     Indication: PROPHYLAXIS AGAINST GRAFT VERSUS HOST DISEASE
     Dosage: 3 MG/KG, UNK
  6. ANTITHYMOCYTE IMMUNOGLOBULIN [Suspect]
     Active Substance: THYMOCYTE IMMUNE GLOBULIN NOS
     Indication: PROPHYLAXIS AGAINST GRAFT VERSUS HOST DISEASE
     Dosage: 30 MG/KG, UNK
  7. MYCOPHENOLIC ACID. [Suspect]
     Active Substance: MYCOPHENOLIC ACID
     Indication: PROPHYLAXIS AGAINST GRAFT VERSUS HOST DISEASE
     Dosage: 30 MG/KG, UNK
  8. TREOSULFAN [Suspect]
     Active Substance: TREOSULFAN
     Indication: BONE MARROW CONDITIONING REGIMEN
     Dosage: 14000 MG/M2, UNK

REACTIONS (3)
  - Cytomegalovirus infection [Recovered/Resolved]
  - Mucosal inflammation [Recovered/Resolved]
  - Acute graft versus host disease [Recovered/Resolved]
